FAERS Safety Report 8903869 (Version 1)
Quarter: 2012Q4

REPORT INFORMATION
  Report Type: 
  Country: BE (occurrence: BE)
  Receive Date: 20121112
  Receipt Date: 20121112
  Transmission Date: 20130627
  Serious: Yes (Hospitalization)
  Sender: FDA-Public Use
  Company Number: BE-MYLANLABS-2012S1022725

PATIENT
  Age: 46 Year
  Sex: Female

DRUGS (4)
  1. LAMOTRIGINE [Suspect]
     Indication: CONVULSION
     Dosage: Daily
     Route: 065
  2. GABAPENTIN [Suspect]
     Indication: CONVULSION
     Route: 065
  3. LEVETIRACETAM [Suspect]
     Indication: CONVULSION
     Route: 065
  4. VALPROIC ACID [Suspect]
     Indication: CONVULSION
     Route: 065

REACTIONS (8)
  - Hypothermia [Recovering/Resolving]
  - Incorrect dose administered [Recovered/Resolved]
  - Decreased appetite [Recovering/Resolving]
  - Apathy [Recovering/Resolving]
  - Hypotension [Recovering/Resolving]
  - Oxygen saturation decreased [Recovering/Resolving]
  - Mental status changes [None]
  - Motor dysfunction [None]
